FAERS Safety Report 18545263 (Version 3)
Quarter: 2021Q1

REPORT INFORMATION
  Report Type: Spontaneous
  Country: US (occurrence: US)
  Receive Date: 20201125
  Receipt Date: 20210111
  Transmission Date: 20210419
  Serious: No
  Sender: FDA-Public Use
  Company Number: US-PFIZER INC-2020457883

PATIENT
  Age: 23 Year
  Sex: Female
  Weight: 63.6 kg

DRUGS (1)
  1. EPINEPHRINE. [Suspect]
     Active Substance: EPINEPHRINE
     Indication: CARDIAC ARREST
     Dosage: UNK (0.1 MG PER ML; 10ML SYRINGE FOR A TOTAL OF 1 MG)
     Dates: start: 20201117

REACTIONS (5)
  - Product administration interrupted [Unknown]
  - Product use issue [Unknown]
  - Poor quality product administered [Unknown]
  - Off label use [Unknown]
  - Syringe issue [Unknown]

NARRATIVE: CASE EVENT DATE: 20201117
